FAERS Safety Report 10029237 (Version 1)
Quarter: 2014Q1

REPORT INFORMATION
  Report Type: Spontaneous
  Country: IT (occurrence: IT)
  Receive Date: 20140321
  Receipt Date: 20140321
  Transmission Date: 20141002
  Serious: Yes (Hospitalization)
  Sender: FDA-Public Use
  Company Number: PHHY2014IT031990

PATIENT
  Age: 57 Year
  Sex: Female

DRUGS (7)
  1. ACETYLSALICYLIC ACID [Suspect]
     Dates: start: 20130601, end: 20140203
  2. CLOPIDOGREL [Suspect]
     Dates: start: 20130601, end: 20140203
  3. DOXAZOSIN [Concomitant]
  4. ISOSORBIDE [Concomitant]
  5. FUROSEMIDE [Concomitant]
  6. NITROGLYCERIN [Concomitant]
  7. ROSUVASTATIN [Concomitant]

REACTIONS (1)
  - Haemoptysis [Unknown]
